FAERS Safety Report 5899172-1 (Version None)
Quarter: 2008Q3

REPORT INFORMATION
  Report Type: 
  Country: None (occurrence: None)
  Receive Date: 20080925
  Receipt Date: 20080916
  Transmission Date: 20090109
  Serious: Yes (Hospitalization)
  Sender: FDA-Public Use
  Company Number: AU-SOLVAY-00308001356

PATIENT
  Age: 59 Year
  Sex: Male

DRUGS (4)
  1. TESTOSTERONE [Suspect]
     Indication: ANDROGEN REPLACEMENT THERAPY
     Dosage: DAILY DOSE: 50 MILLIGRAM(S)
     Route: 062
     Dates: start: 20071122, end: 20080321
  2. VOLTAREN [Concomitant]
     Indication: MYALGIA
     Dosage: DAILY DOSE: 150 MILLIGRAM(S)
     Route: 062
     Dates: start: 20080315, end: 20080321
  3. MOBIC [Concomitant]
     Indication: DRUG USE FOR UNKNOWN INDICATION
     Dosage: DAILY DOSE: 15 MILLIGRAM(S)
     Route: 065
     Dates: start: 20080227, end: 20080301
  4. PRIMOTESTON DEPOT [Suspect]
     Indication: ANDROGEN REPLACEMENT THERAPY
     Dosage: DAILY DOSE: 250 MILLIGRAM(S)
     Route: 030
     Dates: start: 20071107, end: 20071122

REACTIONS (3)
  - CONTUSION [None]
  - DEEP VEIN THROMBOSIS [None]
  - PAIN IN EXTREMITY [None]
